FAERS Safety Report 10347626 (Version 1)
Quarter: 2014Q3

REPORT INFORMATION
  Report Type: Spontaneous
  Country: BR (occurrence: BR)
  Receive Date: 20140729
  Receipt Date: 20140729
  Transmission Date: 20150326
  Serious: Yes (Death)
  Sender: FDA-Public Use
  Company Number: BR-PFIZER INC-2014208254

PATIENT
  Age: 60 Year
  Sex: Male

DRUGS (1)
  1. SUTENT [Suspect]
     Active Substance: SUNITINIB MALATE
     Indication: RENAL CELL CARCINOMA
     Dosage: 50 MG, ON A  4 WEEKS ON AND 2 OFF SCHEDULE
     Route: 048
     Dates: start: 20140627

REACTIONS (1)
  - Death [Fatal]

NARRATIVE: CASE EVENT DATE: 20140721
